FAERS Safety Report 10086157 (Version 1)
Quarter: 2014Q2

REPORT INFORMATION
  Report Type: Spontaneous
  Country: US (occurrence: None)
  Receive Date: 20140417
  Receipt Date: 20140417
  Transmission Date: 20141212
  Serious: Yes (Death)
  Sender: FDA-Public Use
  Company Number: None

PATIENT
  Age: 23 Year
  Sex: Female
  Weight: 86.18 kg

DRUGS (4)
  1. MIRENA IUD [Suspect]
  2. SERTRALINE HCL [Concomitant]
  3. HYDROXYZINE HCL [Concomitant]
  4. ALBUTEROL [Concomitant]

REACTIONS (1)
  - Completed suicide [None]
